FAERS Safety Report 8237235-6 (Version None)
Quarter: 2012Q1

REPORT INFORMATION
  Report Type: 
  Country: None (occurrence: None)
  Receive Date: 20120327
  Receipt Date: 20120323
  Transmission Date: 20120608
  Serious: Yes (Other)
  Sender: FDA-Public Use
  Company Number: US-PFIZER INC-2011258451

PATIENT
  Sex: Female
  Weight: 117.91 kg

DRUGS (3)
  1. SUTENT [Suspect]
     Dosage: 50 MG, DAILY
     Dates: start: 20110101
  2. SUTENT [Suspect]
     Indication: NEOPLASM MALIGNANT
     Dosage: 50 MG, 1X/DAY
     Route: 048
     Dates: end: 20111019
  3. SUTENT [Suspect]
     Indication: RENAL CELL CARCINOMA
     Dosage: 50 MG, DAILY

REACTIONS (7)
  - LACRIMATION INCREASED [None]
  - UTERINE CANCER [None]
  - MOUTH ULCERATION [None]
  - DIARRHOEA [None]
  - NEOPLASM MALIGNANT [None]
  - ORAL DISCOMFORT [None]
  - EYE IRRITATION [None]
